FAERS Safety Report 8474042-3 (Version None)
Quarter: 2012Q2

REPORT INFORMATION
  Report Type: 
  Country: None (occurrence: None)
  Receive Date: 20120628
  Receipt Date: 20120510
  Transmission Date: 20120825
  Serious: Yes (Death)
  Sender: FDA-Public Use
  Company Number: US-MYLANLABS-2012S1008515

PATIENT
  Age: 35 Year
  Sex: Female
  Weight: 114.22 kg

DRUGS (6)
  1. LEVOTHYROXINE [Concomitant]
  2. CALCIUM + VITAMIN D /01483701/ [Concomitant]
     Indication: SUPPLEMENTATION THERAPY
  3. FENOFIBRATE [Concomitant]
  4. DEPO-PROVERA [Concomitant]
  5. CLOZAPINE [Suspect]
     Indication: SCHIZOAFFECTIVE DISORDER BIPOLAR TYPE
     Route: 048
     Dates: start: 20110101, end: 20120401
  6. THERA-M [Concomitant]

REACTIONS (1)
  - DEATH [None]
